FAERS Safety Report 5216147-6 (Version None)
Quarter: 2007Q1

REPORT INFORMATION
  Report Type: 
  Country: None (occurrence: None)
  Receive Date: 20070118
  Receipt Date: 20070109
  Transmission Date: 20070707
  Serious: Yes (Other)
  Sender: FDA-Public Use
  Company Number: 2007SP000510

PATIENT
  Age: 40 Year
  Sex: Female

DRUGS (2)
  1. PEG-INTRON [Suspect]
     Indication: HEPATITIS C
     Dosage: SC
     Route: 058
     Dates: start: 20061207
  2. REBETOL [Suspect]
     Indication: HEPATITIS C
     Dosage: PO
     Route: 048
     Dates: start: 20061207

REACTIONS (5)
  - ERYTHEMA [None]
  - GASTRIC DISORDER [None]
  - GASTRIC NEOPLASM [None]
  - HAEMATEMESIS [None]
  - NAUSEA [None]
